FAERS Safety Report 4321161-9 (Version None)
Quarter: 2004Q1

REPORT INFORMATION
  Report Type: 
  Country: None (occurrence: None)
  Receive Date: 20040312
  Receipt Date: 20031212
  Transmission Date: 20041129
  Serious: Yes (Hospitalization)
  Sender: FDA-Public Use
  Company Number: S03-USA-03019-01

PATIENT
  Age: 54 Year
  Sex: Female

DRUGS (7)
  1. LEXAPRO [Suspect]
     Indication: DEPRESSION
     Dosage: 10 MG QD PO
     Route: 048
     Dates: start: 20030610, end: 20030611
  2. LEXAPRO [Suspect]
     Indication: PAIN
     Dosage: 10 MG QD PO
     Route: 048
     Dates: start: 20030610, end: 20030611
  3. OXYCONTIN [Concomitant]
  4. LORTAB [Concomitant]
  5. PREMARIN [Concomitant]
  6. LEVOXYL [Concomitant]
  7. PRILOSEC [Concomitant]

REACTIONS (1)
  - ANXIETY [None]
